FAERS Safety Report 8924921 (Version 3)
Quarter: 2013Q3

REPORT INFORMATION
  Report Type: Spontaneous
  Country: US (occurrence: US)
  Receive Date: 20121126
  Receipt Date: 20130722
  Transmission Date: 20140515
  Serious: Yes (Hospitalization)
  Sender: FDA-Public Use
  Company Number: US-BAYER-2012-121459

PATIENT
  Age: 54 Year
  Sex: Female
  Weight: 48.53 kg

DRUGS (8)
  1. YAZ [Suspect]
     Indication: ENDOMETRIOSIS
     Dosage: UNK
     Dates: start: 200907, end: 201105
  2. ALLEGRA [Concomitant]
  3. SYMBICORT [Concomitant]
  4. ALBUTEROL [Concomitant]
  5. FEXOFENADINE [Concomitant]
  6. ASTELIN [Concomitant]
  7. DRUGS FOR OBSTRUCTIVE AIRWAY DISEASES [Concomitant]
  8. SINGULAIR [Concomitant]

REACTIONS (9)
  - Pulmonary embolism [None]
  - Deep vein thrombosis [None]
  - Injury [None]
  - Pain [None]
  - Pain in extremity [None]
  - Arthralgia [None]
  - Venous injury [None]
  - Anxiety [None]
  - Stress [None]
